FAERS Safety Report 23487093 (Version 1)
Quarter: 2024Q1

REPORT INFORMATION
  Report Type: Spontaneous
  Country: US (occurrence: None)
  Receive Date: 20240205
  Receipt Date: 20240205
  Transmission Date: 20240410
  Serious: Yes (Hospitalization)
  Sender: FDA-Public Use
  Company Number: None

PATIENT
  Sex: Female

DRUGS (12)
  1. TEZSPIRE [Suspect]
     Active Substance: TEZEPELUMAB-EKKO
     Indication: Asthma
     Dosage: OTHER QUANTITY : 210MG/1.9ML;?FREQUENCY : MONTHLY;?
     Route: 058
     Dates: start: 20230830
  2. AMLODIPINE [Concomitant]
     Active Substance: AMLODIPINE BESYLATE
  3. CYCLOBENZAPRINE [Concomitant]
     Active Substance: CYCLOBENZAPRINE
  4. LIDOCAINE [Concomitant]
     Active Substance: LIDOCAINE
  5. LISINOPRIL [Concomitant]
     Active Substance: LISINOPRIL
  6. METHYLPREDNISOLONE [Concomitant]
     Active Substance: METHYLPREDNISOLONE
  7. PREDNISONE [Concomitant]
     Active Substance: PREDNISONE
  8. QVAR REDIHA SER [Concomitant]
  9. TRAMADOL HCL [Concomitant]
     Active Substance: TRAMADOL HYDROCHLORIDE
  10. VENTOLIN HFA AER [Concomitant]
  11. ZAFIRLUKAST [Concomitant]
     Active Substance: ZAFIRLUKAST
  12. ZITHROMAX [Concomitant]
     Active Substance: AZITHROMYCIN DIHYDRATE

REACTIONS (3)
  - Influenza [None]
  - Pneumonia [None]
  - Impaired quality of life [None]
